FAERS Safety Report 8071702-3 (Version None)
Quarter: 2012Q1

REPORT INFORMATION
  Report Type: 
  Country: None (occurrence: None)
  Receive Date: 20120125
  Receipt Date: 20120117
  Transmission Date: 20120608
  Serious: Yes (Hospitalization)
  Sender: FDA-Public Use
  Company Number: FR-TEVA-318628ISR

PATIENT
  Sex: Female

DRUGS (7)
  1. VALACYCLOVIR HYDROCHLORIDE [Suspect]
     Route: 048
  2. LEVACT [Suspect]
     Route: 041
     Dates: start: 20110818, end: 20111019
  3. OXYTOCIN [Suspect]
     Route: 048
  4. XANAX [Suspect]
  5. ZOLOFT [Suspect]
  6. ALKERAN [Suspect]
     Route: 042
     Dates: start: 20111024
  7. VELCADE [Suspect]
     Route: 042
     Dates: start: 20110214

REACTIONS (1)
  - CHOLESTASIS [None]
